FAERS Safety Report 24595826 (Version 1)
Quarter: 2024Q4

REPORT INFORMATION
  Report Type: Spontaneous
  Country: SE (occurrence: SE)
  Receive Date: 20241109
  Receipt Date: 20241109
  Transmission Date: 20250114
  Serious: Yes (Hospitalization, Other)
  Sender: ALEXION PHARMACEUTICALS
  Company Number: SE-ASTRAZENECA-202409EEA014547SE

PATIENT
  Age: 79 Year
  Weight: 83 kg

DRUGS (20)
  1. ESOMEPRAZOLE [Suspect]
     Active Substance: ESOMEPRAZOLE
     Indication: Cardiovascular disorder
     Dosage: 20 MILLIGRAM
  2. ESOMEPRAZOLE [Suspect]
     Active Substance: ESOMEPRAZOLE
     Dosage: 20 MILLIGRAM
  3. ESOMEPRAZOLE [Suspect]
     Active Substance: ESOMEPRAZOLE
     Dosage: 20 MILLIGRAM
  4. ESOMEPRAZOLE [Suspect]
     Active Substance: ESOMEPRAZOLE
     Dosage: 20 MILLIGRAM
  5. TICAGRELOR [Suspect]
     Active Substance: TICAGRELOR
     Indication: Cardiovascular event prophylaxis
     Dosage: UNK
  6. TICAGRELOR [Suspect]
     Active Substance: TICAGRELOR
     Dosage: UNK
  7. TICAGRELOR [Suspect]
     Active Substance: TICAGRELOR
     Dosage: UNK
  8. TICAGRELOR [Suspect]
     Active Substance: TICAGRELOR
     Dosage: UNK
  9. ASPIRIN [Concomitant]
     Active Substance: ASPIRIN
  10. ASPIRIN [Concomitant]
     Active Substance: ASPIRIN
     Route: 065
  11. FELODIPINE [Concomitant]
     Active Substance: FELODIPINE
  12. FELODIPINE [Concomitant]
     Active Substance: FELODIPINE
     Route: 065
  13. LOSARTAN [Concomitant]
     Active Substance: LOSARTAN
  14. LOSARTAN [Concomitant]
     Active Substance: LOSARTAN
     Route: 065
  15. ACETAMINOPHEN [Concomitant]
     Active Substance: ACETAMINOPHEN
  16. ACETAMINOPHEN [Concomitant]
     Active Substance: ACETAMINOPHEN
     Route: 065
  17. ATORVASTATIN [Concomitant]
     Active Substance: ATORVASTATIN
  18. ATORVASTATIN [Concomitant]
     Active Substance: ATORVASTATIN
     Route: 065
  19. EZETIMIBE [Concomitant]
     Active Substance: EZETIMIBE
  20. EZETIMIBE [Concomitant]
     Active Substance: EZETIMIBE
     Route: 065

REACTIONS (1)
  - Duodenal ulcer [Recovered/Resolved]
